FAERS Safety Report 7778443-8 (Version None)
Quarter: 2011Q3

REPORT INFORMATION
  Report Type: 
  Country: None (occurrence: None)
  Receive Date: 20110926
  Receipt Date: 20110921
  Transmission Date: 20111222
  Serious: Yes (Other)
  Sender: FDA-Public Use
  Company Number: US-GLAXOSMITHKLINE-A0945850A

PATIENT
  Age: 40 Year
  Sex: Female

DRUGS (9)
  1. MYCOPHENOLATE MOFETIL (CELLCEPT) [Concomitant]
     Indication: IDIOPATHIC THROMBOCYTOPENIC PURPURA
  2. IMMUNE GLOBULIN INTRAVENOUS (HUMAN) [Concomitant]
     Indication: IDIOPATHIC THROMBOCYTOPENIC PURPURA
  3. ZYRTEC [Concomitant]
     Dosage: 10MG PER DAY
  4. SEASONALE [Concomitant]
  5. VITAMIN B COMPLEX CAP [Concomitant]
  6. PROMACTA [Suspect]
     Indication: IDIOPATHIC THROMBOCYTOPENIC PURPURA
     Dates: start: 20090424
  7. CORTICOSTEROIDS [Concomitant]
     Indication: IDIOPATHIC THROMBOCYTOPENIC PURPURA
  8. UNISOM [Concomitant]
  9. CALCIUM CARBONATE [Concomitant]

REACTIONS (3)
  - BILIARY COLIC [None]
  - CHOLECYSTITIS [None]
  - TRANSAMINASES INCREASED [None]
